FAERS Safety Report 23866285 (Version 1)
Quarter: 2024Q2

REPORT INFORMATION
  Report Type: Spontaneous
  Country: IT (occurrence: IT)
  Receive Date: 20240517
  Receipt Date: 20240517
  Transmission Date: 20240716
  Serious: Yes (Hospitalization)
  Sender: FDA-Public Use
  Company Number: IT-ROCHE-3363252

PATIENT
  Age: 74 Year
  Sex: Female
  Weight: 55 kg

DRUGS (23)
  1. CARBOPLATIN [Suspect]
     Active Substance: CARBOPLATIN
     Indication: Small cell lung cancer extensive stage
     Dosage: 251.06 MILLIGRAM(ON 26/APR/2023, RECEIVED MOST RECENT DOSE OF 251.06 MG OF CARBOPLATIN PRIOR TO AE/S
     Route: 042
  2. CARBOPLATIN [Suspect]
     Active Substance: CARBOPLATIN
     Dosage: 276 MILLIGRAM(ON 26/APR/2023, RECEIVED MOST RECENT DOSE OF 251.06 MG OF CARBOPLATIN PRIOR TO AE/SAE.
     Route: 042
     Dates: start: 20230215
  3. ETOPOSIDE [Suspect]
     Active Substance: ETOPOSIDE
     Indication: Small cell lung cancer extensive stage
     Dosage: 151 MILLIGRAM(28/APR/2023, RECEIVED MOST RECENT DOSE OF 113.26 MG ETOPOSIDE PRIOR TO AE/SAE.)
     Route: 065
     Dates: start: 20230215
  4. ETOPOSIDE [Suspect]
     Active Substance: ETOPOSIDE
     Dosage: 113.25 MILLIGRAM(28/APR/2023, RECEIVED MOST RECENT DOSE OF 113.26 MG ETOPOSIDE PRIOR TO AE/SAE.)
     Route: 065
  5. MORPHINE [Concomitant]
     Active Substance: MORPHINE
     Indication: Back pain
     Dosage: UNK
     Route: 065
     Dates: start: 20230209, end: 20230622
  6. MORPHINE [Concomitant]
     Active Substance: MORPHINE
     Indication: Pain in extremity
     Dosage: UNK
     Route: 065
     Dates: start: 20230603
  7. MORPHINE [Concomitant]
     Active Substance: MORPHINE
     Indication: Bone pain
  8. TACHIPIRINA [Concomitant]
     Active Substance: ACETAMINOPHEN
     Indication: Product used for unknown indication
     Dosage: UNK
     Route: 065
     Dates: start: 20230603
  9. NALOXONE [Concomitant]
     Active Substance: NALOXONE
     Indication: Back pain
     Dosage: UNK
     Route: 065
     Dates: start: 20230209
  10. NALOXONE [Concomitant]
     Active Substance: NALOXONE
     Indication: Pain in extremity
  11. PREDNISONE [Concomitant]
     Active Substance: PREDNISONE
     Indication: Pain in extremity
     Dosage: 120 MILLIGRAM, ONCE A DAY
     Route: 065
     Dates: start: 20230209
  12. PREDNISONE [Concomitant]
     Active Substance: PREDNISONE
     Indication: Back pain
  13. OXYCODONE [Concomitant]
     Active Substance: OXYCODONE\OXYCODONE HYDROCHLORIDE
     Indication: Back pain
     Dosage: UNK
     Route: 065
     Dates: start: 20230209
  14. OXYCODONE [Concomitant]
     Active Substance: OXYCODONE\OXYCODONE HYDROCHLORIDE
     Indication: Pain in extremity
  15. FILGRASTIM [Concomitant]
     Active Substance: FILGRASTIM
     Indication: Neutropenia
     Dosage: DOSE: 1 OTHER
     Route: 065
     Dates: start: 20230327
  16. PANTOPRAZOLE [Concomitant]
     Active Substance: PANTOPRAZOLE
     Indication: Product used for unknown indication
     Dosage: UNK
     Route: 065
     Dates: start: 2018
  17. ATEZOLIZUMAB [Concomitant]
     Active Substance: ATEZOLIZUMAB
     Indication: Small cell lung cancer extensive stage
     Dosage: 1200 MILLIGRAM(ON 17/MAY/2023, RECEIVED MOST RECENT DOSE OF 1200 MG ATEZOLIZUMAB PRIOR TO AE/SAE.)
     Route: 065
     Dates: start: 20230215
  18. FOLIC ACID [Concomitant]
     Active Substance: FOLIC ACID
     Indication: Product used for unknown indication
     Dosage: UNK
     Route: 065
     Dates: start: 20230603
  19. MINERAL OIL [Concomitant]
     Active Substance: MINERAL OIL
     Indication: Product used for unknown indication
     Dosage: UNK
     Route: 065
     Dates: start: 20230209
  20. XANAX [Concomitant]
     Active Substance: ALPRAZOLAM
     Indication: Anxiety
     Dosage: UNK
     Route: 065
     Dates: start: 20230603
  21. ALLOPURINOL [Concomitant]
     Active Substance: ALLOPURINOL
     Indication: Hyperuricaemia
     Dosage: UNK
     Route: 065
     Dates: start: 2015
  22. LYRICA [Concomitant]
     Active Substance: PREGABALIN
     Indication: Bone pain
     Dosage: UNK
     Route: 065
     Dates: start: 20230603
  23. LISINOPRIL [Concomitant]
     Active Substance: LISINOPRIL
     Indication: Hypertension
     Dosage: UNK
     Route: 065
     Dates: start: 2018

REACTIONS (1)
  - Bacteroides infection [Recovered/Resolved]

NARRATIVE: CASE EVENT DATE: 20230603
